FAERS Safety Report 9776363 (Version 7)
Quarter: 2014Q2

REPORT INFORMATION
  Report Type: Report from Study
  Country: JP (occurrence: JP)
  Receive Date: 20131220
  Receipt Date: 20140625
  Transmission Date: 20141212
  Serious: Yes (Death)
  Sender: FDA-Public Use
  Company Number: JP-PFIZER INC-2013361262

PATIENT
  Age: 49 Year
  Sex: Male
  Weight: 67 kg

DRUGS (4)
  1. VENLAFAXINE HCL [Suspect]
     Indication: DEPRESSION
     Dosage: 37.5 MG, 1X/DAY
     Route: 048
     Dates: start: 20131209, end: 20131214
  2. MYSLEE [Concomitant]
     Indication: MAJOR DEPRESSION
     Dosage: UNK
     Dates: start: 20131127
  3. MYSLEE [Concomitant]
     Indication: SLEEP DISORDER
  4. DIOVAN [Concomitant]
     Indication: HYPERTENSION
     Dosage: UNK
     Dates: start: 2012

REACTIONS (1)
  - Completed suicide [Fatal]
